FAERS Safety Report 22126725 (Version 1)
Quarter: 2023Q1

REPORT INFORMATION
  Report Type: Spontaneous
  Country: US (occurrence: US)
  Receive Date: 20230322
  Receipt Date: 20230322
  Transmission Date: 20230417
  Serious: No
  Sender: FDA-Public Use
  Company Number: US-ALLERGAN-2305789US

PATIENT
  Sex: Female

DRUGS (1)
  1. ESTRACE [Suspect]
     Active Substance: ESTRADIOL
     Indication: Product used for unknown indication
     Dosage: UNK

REACTIONS (2)
  - Anaemia [Not Recovered/Not Resolved]
  - Sinus disorder [Not Recovered/Not Resolved]
